FAERS Safety Report 5585864-0 (Version None)
Quarter: 2007Q4

REPORT INFORMATION
  Report Type: 
  Country: None (occurrence: None)
  Receive Date: 20071205
  Receipt Date: 20061023
  Transmission Date: 20080405
  Serious: Yes (Other)
  Sender: FDA-Public Use
  Company Number: HQWYE482124OCT06

PATIENT
  Age: 56 Year
  Sex: Male

DRUGS (2)
  1. EFFEXOR XR [Suspect]
     Indication: ANXIETY
     Dosage: 37.5 MG 1X PER 1 DAY, ORAL
     Route: 048
     Dates: start: 20060901, end: 20060901
  2. LEXAPRO [Suspect]
     Dosage: 20 MG 1X PER 1 DAY
     Dates: start: 20060101, end: 20060901

REACTIONS (1)
  - CONVULSION [None]
